FAERS Safety Report 6978052-4 (Version None)
Quarter: 2010Q3

REPORT INFORMATION
  Report Type: 
  Country: None (occurrence: None)
  Receive Date: 20100913
  Receipt Date: 20100830
  Transmission Date: 20110219
  Serious: Yes (Hospitalization)
  Sender: FDA-Public Use
  Company Number: US-ELI_LILLY_AND_COMPANY-US201006003590

PATIENT
  Sex: Female
  Weight: 46.259 kg

DRUGS (8)
  1. FORTEO [Suspect]
     Indication: OSTEOPOROSIS
     Dosage: 20 UG, UNKNOWN
  2. DOXYCYCLINE [Concomitant]
     Indication: KIDNEY INFECTION
  3. FLOMAX [Concomitant]
     Indication: KIDNEY INFECTION
  4. DILAUDID [Concomitant]
     Dosage: 4 MG, UNK
  5. NEURONTIN [Concomitant]
     Dosage: UNK, EACH EVENING
  6. CALCIUM [Concomitant]
  7. VITAMIN A [Concomitant]
  8. MORPHINE SULFATE [Concomitant]

REACTIONS (31)
  - ABDOMINAL DISCOMFORT [None]
  - ASTHENIA [None]
  - BACK PAIN [None]
  - BLOOD URINE PRESENT [None]
  - BURNING SENSATION [None]
  - CONSTIPATION [None]
  - CRYSTALLURIA [None]
  - DECREASED APPETITE [None]
  - DEHYDRATION [None]
  - DISTURBANCE IN ATTENTION [None]
  - DYSSTASIA [None]
  - EATING DISORDER [None]
  - FEELING ABNORMAL [None]
  - FLANK PAIN [None]
  - HOT FLUSH [None]
  - KIDNEY INFECTION [None]
  - MALAISE [None]
  - MUSCULOSKELETAL CHEST PAIN [None]
  - NAUSEA [None]
  - NEPHROLITHIASIS [None]
  - PAIN [None]
  - PYREXIA [None]
  - RENAL PAIN [None]
  - SENSATION OF PRESSURE [None]
  - STOMATITIS [None]
  - URINARY TRACT INFECTION [None]
  - URINARY TRACT OBSTRUCTION [None]
  - URINE OUTPUT DECREASED [None]
  - URINE OUTPUT INCREASED [None]
  - VOMITING [None]
  - WEIGHT DECREASED [None]
